FAERS Safety Report 9711080 (Version 2)
Quarter: 2013Q4

REPORT INFORMATION
  Report Type: Spontaneous
  Country: US (occurrence: US)
  Receive Date: 20131126
  Receipt Date: 20131126
  Transmission Date: 20140711
  Serious: No
  Sender: FDA-Public Use
  Company Number: US-BRISTOL-MYERS SQUIBB COMPANY-18700989

PATIENT
  Age: 78 Year
  Sex: Female
  Weight: 85.26 kg

DRUGS (3)
  1. BYDUREON [Suspect]
     Indication: TYPE 2 DIABETES MELLITUS
     Dosage: NO OF INJ:9
     Route: 058
  2. NOVOLOG [Concomitant]
  3. LANTUS [Concomitant]

REACTIONS (7)
  - Energy increased [Unknown]
  - Weight decreased [Unknown]
  - Injection site haemorrhage [Recovered/Resolved]
  - Injection site pain [Recovered/Resolved]
  - Blood glucose decreased [Unknown]
  - Injection site extravasation [Recovered/Resolved]
  - Injection site swelling [Not Recovered/Not Resolved]
